FAERS Safety Report 6203584-6 (Version None)
Quarter: 2009Q2

REPORT INFORMATION
  Report Type: 
  Country: None (occurrence: None)
  Receive Date: 20090522
  Receipt Date: 20090522
  Transmission Date: 20091009
  Serious: Yes (Other)
  Sender: FDA-Public Use
  Company Number: None

PATIENT
  Age: 6 Year
  Sex: Female
  Weight: 23.587 kg

DRUGS (1)
  1. SINGULAIR [Suspect]
     Indication: MULTIPLE ALLERGIES
     Dosage: 5MG DAILY PO
     Route: 048
     Dates: start: 20080801, end: 20090510

REACTIONS (4)
  - ABNORMAL BEHAVIOUR [None]
  - AFFECT LABILITY [None]
  - APATHY [None]
  - DEPRESSED MOOD [None]
